FAERS Safety Report 9893839 (Version 3)
Quarter: 2014Q1

REPORT INFORMATION
  Report Type: Spontaneous
  Country: US (occurrence: US)
  Receive Date: 20140213
  Receipt Date: 20140307
  Transmission Date: 20141002
  Serious: Yes (Disabling, Other)
  Sender: FDA-Public Use
  Company Number: US-PFIZER INC-2014039524

PATIENT
  Age: 53 Year
  Sex: Female
  Weight: 117.91 kg

DRUGS (3)
  1. LYRICA [Suspect]
     Indication: FIBROMYALGIA
     Dosage: 150 MG, 2X/DAY
     Route: 048
  2. LYRICA [Suspect]
     Indication: NEUROPATHY PERIPHERAL
  3. EFFEXOR-XR [Concomitant]
     Dosage: 150 MG, 2X/DAY

REACTIONS (1)
  - Road traffic accident [Unknown]
